FAERS Safety Report 7223278-8 (Version None)
Quarter: 2011Q1

REPORT INFORMATION
  Report Type: 
  Country: None (occurrence: None)
  Receive Date: 20110112
  Receipt Date: 20100408
  Transmission Date: 20110831
  Serious: No
  Sender: FDA-Public Use
  Company Number: US-ALLERGAN-1004613US

PATIENT
  Age: 59 Year
  Sex: Female

DRUGS (3)
  1. RESTASIS [Suspect]
     Indication: KERATOCONJUNCTIVITIS SICCA
     Dosage: 1 GTT, BID
     Dates: start: 20091201, end: 20100311
  2. GLYBURIDE [Concomitant]
     Indication: DIABETES MELLITUS
  3. LOTEMAX [Concomitant]

REACTIONS (1)
  - MADAROSIS [None]
